FAERS Safety Report 7671479-7 (Version None)
Quarter: 2011Q3

REPORT INFORMATION
  Report Type: 
  Country: None (occurrence: None)
  Receive Date: 20110809
  Receipt Date: 20110805
  Transmission Date: 20111222
  Serious: Yes (Other)
  Sender: FDA-Public Use
  Company Number: US-PFIZER INC-2011180198

PATIENT
  Age: 55 Year
  Sex: Male

DRUGS (1)
  1. VIAGRA [Suspect]
     Indication: DISTURBANCE IN SEXUAL AROUSAL
     Dosage: 25 MG, AS NEEDED
     Route: 048

REACTIONS (6)
  - PENILE PAIN [None]
  - MALAISE [None]
  - DYSPAREUNIA [None]
  - DIZZINESS [None]
  - ERECTION INCREASED [None]
  - SWELLING [None]
